FAERS Safety Report 6467551-X (Version None)
Quarter: 2009Q4

REPORT INFORMATION
  Report Type: 
  Country: None (occurrence: None)
  Receive Date: 20091202
  Receipt Date: 20091201
  Transmission Date: 20100525
  Serious: Yes (Death, Life-Threatening)
  Sender: FDA-Public Use
  Company Number: JP-WYE-H11633309

PATIENT
  Age: 75 Year
  Sex: Male

DRUGS (2)
  1. ZOSYN [Suspect]
     Indication: PNEUMONIA
     Route: 042
     Dates: start: 20090914, end: 20090925
  2. ZOSYN [Suspect]
     Route: 042
     Dates: start: 20091005, end: 20091011

REACTIONS (3)
  - AORTIC ANEURYSM RUPTURE [None]
  - BLOOD CREATININE INCREASED [None]
  - RENAL IMPAIRMENT [None]
